FAERS Safety Report 10071177 (Version 10)
Quarter: 2016Q3

REPORT INFORMATION
  Report Type: Spontaneous
  Country: US (occurrence: US)
  Receive Date: 20140410
  Receipt Date: 20160726
  Transmission Date: 20161108
  Serious: Yes (Hospitalization, Disabling, Other)
  Sender: FDA-Public Use
  Company Number: US-009507513-1404USA001968

PATIENT
  Sex: Male
  Weight: 122.45 kg

DRUGS (3)
  1. AMBIEN [Concomitant]
     Active Substance: ZOLPIDEM TARTRATE
     Indication: PRODUCT USED FOR UNKNOWN INDICATION
     Dosage: UNK, UNKNOWN
     Route: 065
     Dates: start: 20010330, end: 20061026
  2. THERAPY UNSPECIFIED [Concomitant]
     Active Substance: UNSPECIFIED INGREDIENT
     Indication: ANTIDEPRESSANT THERAPY
     Dosage: UNK, UNKNOWN
     Route: 065
     Dates: start: 20010511
  3. PROPECIA [Suspect]
     Active Substance: FINASTERIDE
     Indication: ALOPECIA
     Dosage: 1 MG, UNKNOWN
     Route: 048
     Dates: start: 20021021, end: 2003

REACTIONS (41)
  - Road traffic accident [Unknown]
  - Urine flow decreased [Unknown]
  - Dyspnoea [Unknown]
  - Intervertebral disc operation [Unknown]
  - Sexual dysfunction [Not Recovered/Not Resolved]
  - Gastrooesophageal reflux disease [Unknown]
  - Hypertension [Unknown]
  - Insomnia [Unknown]
  - Hypotension [Recovered/Resolved]
  - Appendicectomy [Unknown]
  - Erectile dysfunction [Unknown]
  - Dysuria [Unknown]
  - Major depression [Unknown]
  - Blood testosterone decreased [Unknown]
  - Cough [Unknown]
  - Cranioplasty [Unknown]
  - Spinal fusion surgery [Unknown]
  - Psychotic disorder [Unknown]
  - Hypogonadism [Unknown]
  - Oedema peripheral [Unknown]
  - Anxiety [Not Recovered/Not Resolved]
  - Bipolar disorder [Unknown]
  - Glucose tolerance impaired [Unknown]
  - Sleep apnoea syndrome [Unknown]
  - HIV infection [Unknown]
  - Mania [Unknown]
  - Lower urinary tract symptoms [Unknown]
  - Testicular failure [Unknown]
  - Seizure [Unknown]
  - Pituitary tumour [Unknown]
  - Chest discomfort [Unknown]
  - Organic erectile dysfunction [Not Recovered/Not Resolved]
  - Major depression [Recovering/Resolving]
  - Benign prostatic hyperplasia [Unknown]
  - Asthenia [Unknown]
  - Suicide attempt [Unknown]
  - Depression [Not Recovered/Not Resolved]
  - Chest pain [Unknown]
  - Anxiety [Not Recovered/Not Resolved]
  - Panic attack [Unknown]
  - Narcolepsy [Unknown]

NARRATIVE: CASE EVENT DATE: 2003
